FAERS Safety Report 6688417-6 (Version None)
Quarter: 2010Q2

REPORT INFORMATION
  Report Type: 
  Country: None (occurrence: None)
  Receive Date: 20100420
  Receipt Date: 20100413
  Transmission Date: 20101027
  Serious: Yes (Other)
  Sender: FDA-Public Use
  Company Number: US-JNJCH-2010009145

PATIENT
  Age: 44 Year
  Sex: Male
  Weight: 89.8 kg

DRUGS (4)
  1. ZYRTEC [Suspect]
     Indication: SEASONAL ALLERGY
     Dosage: TEXT:1 PILL DAILY THEN 1 EVERY OTHER DAY
     Route: 048
  2. ALLEGRA [Suspect]
     Indication: DRUG USE FOR UNKNOWN INDICATION
     Dosage: TEXT:UNKNOWN
     Route: 065
  3. IMODIUM A-D [Concomitant]
     Indication: IRRITABLE BOWEL SYNDROME
     Dosage: TEXT:2MG 2 X A DAY
     Route: 048
  4. PEPTO-BISMOL [Concomitant]
     Indication: IRRITABLE BOWEL SYNDROME
     Dosage: TEXT:2 X A DAY
     Route: 048

REACTIONS (5)
  - ACTIVITIES OF DAILY LIVING IMPAIRED [None]
  - CONDITION AGGRAVATED [None]
  - DRUG INEFFECTIVE FOR UNAPPROVED INDICATION [None]
  - PRURITUS GENERALISED [None]
  - WITHDRAWAL SYNDROME [None]
